FAERS Safety Report 11428713 (Version 2)
Quarter: 2015Q3

REPORT INFORMATION
  Report Type: Report from Study
  Country: BR (occurrence: BR)
  Receive Date: 20150828
  Receipt Date: 20150902
  Transmission Date: 20151125
  Serious: Yes (Death)
  Sender: FDA-Public Use
  Company Number: PHHY2015BR103530

PATIENT
  Age: 67 Year
  Sex: Male
  Weight: 52 kg

DRUGS (4)
  1. CILOSTAZOL. [Suspect]
     Active Substance: CILOSTAZOL
     Indication: PERIPHERAL VASCULAR DISORDER
     Dosage: 1 DF, QD (AT NIGHT)
     Route: 065
     Dates: start: 2010
  2. ASA [Suspect]
     Active Substance: ASPIRIN
     Indication: ANTICOAGULANT THERAPY
     Dosage: 1 DF, QD (AFTER LUNCH)
     Route: 065
     Dates: start: 2006
  3. LEVOTHYROXINE. [Suspect]
     Active Substance: LEVOTHYROXINE
     Indication: HYPOTHYROIDISM
     Dosage: 1 DF, QD (FASTING)
     Route: 065
     Dates: start: 2010
  4. FORASEQ [Suspect]
     Active Substance: BUDESONIDE\FORMOTEROL FUMARATE
     Indication: PNEUMONIA
     Dosage: UNK UNK, Q12H
     Route: 065
     Dates: start: 201403

REACTIONS (2)
  - Pancreatic carcinoma [Fatal]
  - Pneumonia [Unknown]

NARRATIVE: CASE EVENT DATE: 201401
